FAERS Safety Report 19806710 (Version 8)
Quarter: 2025Q3

REPORT INFORMATION
  Report Type: Spontaneous
  Country: US (occurrence: US)
  Receive Date: 20210908
  Receipt Date: 20250809
  Transmission Date: 20251021
  Serious: Yes (Life-Threatening, Hospitalization, Other)
  Sender: ALEXION PHARMACEUTICALS
  Company Number: 2021A717115

PATIENT
  Age: 42 Year
  Sex: Male
  Weight: 122.47 kg

DRUGS (45)
  1. XIGDUO XR [Suspect]
     Active Substance: DAPAGLIFLOZIN PROPANEDIOL\METFORMIN HYDROCHLORIDE
  2. XIGDUO XR [Suspect]
     Active Substance: DAPAGLIFLOZIN PROPANEDIOL\METFORMIN HYDROCHLORIDE
  3. XIGDUO XR [Suspect]
     Active Substance: DAPAGLIFLOZIN PROPANEDIOL\METFORMIN HYDROCHLORIDE
  4. XIGDUO XR [Suspect]
     Active Substance: DAPAGLIFLOZIN PROPANEDIOL\METFORMIN HYDROCHLORIDE
     Dates: start: 201508, end: 201802
  5. LISINOPRIL [Concomitant]
     Active Substance: LISINOPRIL
     Indication: Hypertension
  6. SIMVASTATIN [Concomitant]
     Active Substance: SIMVASTATIN
  7. IBUPROFEN [Concomitant]
     Active Substance: IBUPROFEN
  8. DOXYCYCLINE [Concomitant]
     Active Substance: DOXYCYCLINE
  9. GABAPENTIN [Concomitant]
     Active Substance: GABAPENTIN
  10. HYOSCYAMINE [Concomitant]
     Active Substance: HYOSCYAMINE
  11. HYDROCODONE [Concomitant]
     Active Substance: HYDROCODONE
  12. RIFAMPIN [Concomitant]
     Active Substance: RIFAMPIN
  13. DICLOFENAC [Concomitant]
     Active Substance: DICLOFENAC
  14. NAPROXEN [Concomitant]
     Active Substance: NAPROXEN
  15. CYCLOBENZAPRINE [Concomitant]
     Active Substance: CYCLOBENZAPRINE
  16. MINOCYCLINE [Concomitant]
     Active Substance: MINOCYCLINE HYDROCHLORIDE
  17. METFORMIN [Concomitant]
     Active Substance: METFORMIN HYDROCHLORIDE
  18. TRIMETHOPRIM [Concomitant]
     Active Substance: TRIMETHOPRIM
  19. Bolus adstringens [Concomitant]
  20. FLUCONAZOLE [Concomitant]
     Active Substance: FLUCONAZOLE
  21. AMOXICILLIN [Concomitant]
     Active Substance: AMOXICILLIN
  22. AZO GANTANOL [Concomitant]
     Active Substance: PHENAZOPYRIDINE HYDROCHLORIDE\SULFAMETHOXAZOLE
  23. METHADONE [Concomitant]
     Active Substance: METHADONE HYDROCHLORIDE
  24. GLUCOTROL [Concomitant]
     Active Substance: GLIPIZIDE
  25. MONODOX [Concomitant]
     Active Substance: DOXYCYCLINE
  26. OMEPRAZOLE [Concomitant]
     Active Substance: OMEPRAZOLE
  27. MONTELUKAST [Concomitant]
     Active Substance: MONTELUKAST
  28. LANTUS [Concomitant]
     Active Substance: INSULIN GLARGINE
     Indication: Diabetes mellitus
  29. ATORVASTATIN [Concomitant]
     Active Substance: ATORVASTATIN
     Indication: Blood cholesterol increased
  30. CEPHALEXIN [Concomitant]
     Active Substance: CEPHALEXIN
  31. VANCOMYCIN [Concomitant]
     Active Substance: VANCOMYCIN
  32. OXYCODONE [Concomitant]
     Active Substance: OXYCODONE
  33. LORAZEPAM [Concomitant]
     Active Substance: LORAZEPAM
  34. CHOLECALCIFEROL [Concomitant]
     Active Substance: CHOLECALCIFEROL
  35. FENOFIBRATE [Concomitant]
     Active Substance: FENOFIBRATE
  36. ONDANSETRON [Concomitant]
     Active Substance: ONDANSETRON
  37. ERGOCALCIFEROL [Concomitant]
     Active Substance: ERGOCALCIFEROL
  38. AMLODIPINE [Concomitant]
     Active Substance: AMLODIPINE BESYLATE
  39. GLYCOPYRROLATE [Concomitant]
     Active Substance: GLYCOPYRROLATE
  40. BUPIVACAINE [Concomitant]
     Active Substance: BUPIVACAINE
  41. ALBUTEROL [Concomitant]
     Active Substance: ALBUTEROL
  42. GLIPIZIDE [Concomitant]
     Active Substance: GLIPIZIDE
  43. LANTUS [Concomitant]
     Active Substance: INSULIN GLARGINE
  44. TRULICITY [Concomitant]
     Active Substance: DULAGLUTIDE
  45. CEFDINIR [Concomitant]
     Active Substance: CEFDINIR

REACTIONS (11)
  - Fournier^s gangrene [Unknown]
  - Musculoskeletal pain [Unknown]
  - Abscess limb [Unknown]
  - Sepsis [Unknown]
  - Gangrene [Unknown]
  - Subcutaneous abscess [Unknown]
  - Cellulitis [Unknown]
  - Necrotising fasciitis [Unknown]
  - Genital abscess [Unknown]
  - Anal abscess [Unknown]
  - Abdominal wall abscess [Unknown]

NARRATIVE: CASE EVENT DATE: 20180101
